FAERS Safety Report 4333948-7 (Version None)
Quarter: 2004Q2

REPORT INFORMATION
  Report Type: 
  Country: None (occurrence: None)
  Receive Date: 20040406
  Receipt Date: 20040406
  Transmission Date: 20050107
  Serious: Yes (Life-Threatening, Hospitalization)
  Sender: FDA-Public Use
  Company Number: None

PATIENT
  Age: 19 Year
  Sex: Male
  Weight: 81 kg

DRUGS (11)
  1. METHOTREXATE [Suspect]
     Indication: RENAL DISORDER
     Dosage: 20 GM X 1 IV
     Route: 042
     Dates: start: 20031223, end: 20031223
  2. METHOTREXATE [Suspect]
  3. NAHCO3 [Concomitant]
  4. ZOFRAN [Concomitant]
  5. ATIVAN [Concomitant]
  6. PHENERGAN [Concomitant]
  7. BENADRYL [Concomitant]
  8. DECADRON [Concomitant]
  9. MARINAL [Concomitant]
  10. EPOGEN [Concomitant]
  11. CARBOXYPEPTI [Concomitant]

REACTIONS (2)
  - DRUG CLEARANCE DECREASED [None]
  - RENAL DISORDER [None]
